FAERS Safety Report 7522401-5 (Version None)
Quarter: 2011Q2

REPORT INFORMATION
  Report Type: 
  Country: None (occurrence: None)
  Receive Date: 20110525
  Receipt Date: 20110512
  Transmission Date: 20111010
  Serious: Yes (Hospitalization)
  Sender: FDA-Public Use
  Company Number: M1101951

PATIENT
  Age: 60 Year
  Sex: Female

DRUGS (4)
  1. PACERONE [Suspect]
     Indication: CARDIAC FIBRILLATION
     Dosage: 2 IN 1 D, ORAL
     Route: 048
     Dates: start: 20101201, end: 20110505
  2. PROZAC [Concomitant]
  3. COREG [Concomitant]
  4. LASIX [Concomitant]

REACTIONS (13)
  - DYSPNOEA [None]
  - PNEUMONIA [None]
  - TREMOR [None]
  - CHEST PAIN [None]
  - WEIGHT DECREASED [None]
  - SKIN DISCOLOURATION [None]
  - PAIN [None]
  - BLOOD PRESSURE SYSTOLIC DECREASED [None]
  - FEELING ABNORMAL [None]
  - PARAESTHESIA [None]
  - ALOPECIA [None]
  - JOINT STIFFNESS [None]
  - SKIN BURNING SENSATION [None]
